FAERS Safety Report 9757723 (Version 1)
Quarter: 2013Q4

REPORT INFORMATION
  Report Type: Spontaneous
  Country: PT (occurrence: PT)
  Receive Date: 20131216
  Receipt Date: 20131216
  Transmission Date: 20140711
  Serious: Yes (Disabling)
  Sender: FDA-Public Use
  Company Number: PT-BRISTOL-MYERS SQUIBB COMPANY-19905181

PATIENT
  Age: 85 Year
  Sex: Female

DRUGS (1)
  1. MITOMYCIN-C [Suspect]
     Dosage: INJECTION
     Route: 043
     Dates: start: 20131112

REACTIONS (4)
  - Pruritus genital [Recovering/Resolving]
  - Vulvovaginal pruritus [Recovering/Resolving]
  - Palmar-plantar erythrodysaesthesia syndrome [Recovering/Resolving]
  - Perineal erythema [Recovering/Resolving]
